FAERS Safety Report 10487688 (Version 4)
Quarter: 2015Q1

REPORT INFORMATION
  Report Type: Spontaneous
  Country: DK (occurrence: DK)
  Receive Date: 20141001
  Receipt Date: 20150202
  Transmission Date: 20150720
  Serious: Yes (Death, Hospitalization)
  Sender: FDA-Public Use
  Company Number: DK-PFIZER INC-2014262892

PATIENT
  Age: 58 Year
  Sex: Female

DRUGS (2)
  1. ZARATOR [Suspect]
     Active Substance: ATORVASTATIN CALCIUM
     Indication: HYPERCHOLESTEROLAEMIA
     Dosage: 80 MG, 1X/DAY
     Route: 048
     Dates: start: 20140821, end: 201409
  2. FEXOFENADINE [Concomitant]
     Active Substance: FEXOFENADINE\FEXOFENADINE HYDROCHLORIDE
     Indication: PRURITUS
     Dosage: 180 MG, DAILY
     Route: 048
     Dates: start: 20140821

REACTIONS (28)
  - Multi-organ failure [Fatal]
  - Abdominal compartment syndrome [Fatal]
  - Disseminated intravascular coagulation [Fatal]
  - Rhabdomyolysis [Fatal]
  - Dehydration [Not Recovered/Not Resolved]
  - Lung disorder [Not Recovered/Not Resolved]
  - Haemorrhagic diathesis [Fatal]
  - Cerebral haemorrhage [Fatal]
  - Pericardial effusion [Not Recovered/Not Resolved]
  - Mouth haemorrhage [Not Recovered/Not Resolved]
  - Hypotension [Not Recovered/Not Resolved]
  - Epistaxis [Not Recovered/Not Resolved]
  - Hypovolaemia [Not Recovered/Not Resolved]
  - Gastrointestinal haemorrhage [Not Recovered/Not Resolved]
  - Spleen disorder [Not Recovered/Not Resolved]
  - Hepatic failure [Fatal]
  - Hepatic encephalopathy [Fatal]
  - Subarachnoid haemorrhage [Fatal]
  - Oliguria [Not Recovered/Not Resolved]
  - Laparotomy [Not Recovered/Not Resolved]
  - Sepsis [Not Recovered/Not Resolved]
  - Shock [Fatal]
  - Renal failure [Fatal]
  - Intraventricular haemorrhage [Not Recovered/Not Resolved]
  - Vomiting [Not Recovered/Not Resolved]
  - Diarrhoea [Not Recovered/Not Resolved]
  - Endotracheal intubation [Not Recovered/Not Resolved]
  - Pulmonary embolism [Not Recovered/Not Resolved]

NARRATIVE: CASE EVENT DATE: 201409
